FAERS Safety Report 7444333-3 (Version None)
Quarter: 2011Q2

REPORT INFORMATION
  Report Type: 
  Country: None (occurrence: None)
  Receive Date: 20110429
  Receipt Date: 20110425
  Transmission Date: 20111010
  Serious: No
  Sender: FDA-Public Use
  Company Number: US-BAYER-2011-036331

PATIENT
  Sex: Female

DRUGS (2)
  1. YASMIN [Suspect]
     Indication: ACNE
  2. YAZ [Suspect]
     Indication: ACNE

REACTIONS (2)
  - INJURY [None]
  - PAIN [None]
